FAERS Safety Report 12875940 (Version 1)
Quarter: 2016Q4

REPORT INFORMATION
  Report Type: Spontaneous
  Country: US (occurrence: US)
  Receive Date: 20161024
  Receipt Date: 20161024
  Transmission Date: 20170207
  Serious: No
  Sender: FDA-Public Use
  Company Number: US-JAZZ-2016-US-015195

PATIENT
  Sex: Female

DRUGS (48)
  1. XYREM [Suspect]
     Active Substance: SODIUM OXYBATE
     Dosage: 4.5 G, BID
     Route: 048
     Dates: start: 201507, end: 2016
  2. DIFLUCAN [Concomitant]
     Active Substance: FLUCONAZOLE
  3. MELATONIN [Concomitant]
     Active Substance: MELATONIN
  4. TRAZODONE [Concomitant]
     Active Substance: TRAZODONE HYDROCHLORIDE
  5. VSL#3 [Concomitant]
     Active Substance: PROBIOTICS NOS
  6. DAPSONE. [Concomitant]
     Active Substance: DAPSONE
  7. ACIPHEX [Concomitant]
     Active Substance: RABEPRAZOLE SODIUM
  8. METROCREAM [Concomitant]
     Active Substance: METRONIDAZOLE
  9. XYREM [Suspect]
     Active Substance: SODIUM OXYBATE
     Indication: NARCOLEPSY
     Dosage: 2.25 G, BID
     Route: 048
     Dates: start: 201107, end: 201107
  10. EFFEXOR [Concomitant]
     Active Substance: VENLAFAXINE HYDROCHLORIDE
  11. METFORMIN HCL [Concomitant]
     Active Substance: METFORMIN HYDROCHLORIDE
  12. TRETINOIN. [Concomitant]
     Active Substance: TRETINOIN
  13. CYANOCOBALAMIN. [Concomitant]
     Active Substance: CYANOCOBALAMIN
  14. IRON [Concomitant]
     Active Substance: IRON
  15. XYREM [Suspect]
     Active Substance: SODIUM OXYBATE
     Dosage: DOSE ADJUSTMENTS
     Route: 048
     Dates: start: 201107, end: 201507
  16. GLUTAGENICS [Concomitant]
  17. CHOLESTYRAMINE LIGHT [Concomitant]
     Active Substance: CHOLESTYRAMINE
  18. COENZYME Q10 [Concomitant]
     Active Substance: UBIDECARENONE
  19. FOLTX [Concomitant]
     Active Substance: CYANOCOBALAMIN CO-57\FOLIC ACID\PYRIDOXINE HYDROCHLORIDE
  20. NEUROLINK [Concomitant]
  21. PS [Concomitant]
  22. TRANSFER FACTOR [Concomitant]
  23. METHOTREXATE. [Concomitant]
     Active Substance: METHOTREXATE
  24. AZITHROMYCIN ANHYDROUS. [Concomitant]
     Active Substance: AZITHROMYCIN ANHYDROUS
  25. SINGULAIR [Concomitant]
     Active Substance: MONTELUKAST SODIUM
  26. XYREM [Suspect]
     Active Substance: SODIUM OXYBATE
     Dosage: 2.25 G, BID
     Route: 048
     Dates: start: 201608
  27. FOLIC ACID. [Concomitant]
     Active Substance: FOLIC ACID
  28. PROMETRIUM [Concomitant]
     Active Substance: PROGESTERONE
  29. ADDERALL [Concomitant]
     Active Substance: AMPHETAMINE ASPARTATE\AMPHETAMINE SULFATE\DEXTROAMPHETAMINE SACCHARATE\DEXTROAMPHETAMINE SULFATE
  30. VITAMIN B COMPLEX [Concomitant]
     Active Substance: CYANOCOBALAMIN\DEXPANTHENOL\NIACINAMIDE\PYRIDOXINE HYDROCHLORIDE\RIBOFLAVIN 5^-PHOSPHATE SODIUM\THIAMINE HYDROCHLORIDE\VITAMIN B COMPLEX
  31. CORTEF [Concomitant]
     Active Substance: HYDROCORTISONE
  32. MAGNESIUM GLUCONATE [Concomitant]
     Active Substance: MAGNESIUM GLUCONATE
  33. OLIVE LEAF EXTRACT [Concomitant]
  34. SUCCIMER [Concomitant]
     Active Substance: SUCCIMER
  35. VITAMIN B12 [Concomitant]
     Active Substance: CYANOCOBALAMIN
  36. BEYAZ [Concomitant]
     Active Substance: DROSPIRENONE\ETHINYL ESTRADIOL\LEVOMEFOLATE CALCIUM
  37. PROVIGIL [Concomitant]
     Active Substance: MODAFINIL
  38. MAGNESIUM CITRATE. [Concomitant]
     Active Substance: MAGNESIUM CITRATE
  39. CLINDAMYCIN PHOSPHATE. [Concomitant]
     Active Substance: CLINDAMYCIN PHOSPHATE
  40. PREDNISONE. [Concomitant]
     Active Substance: PREDNISONE
  41. NASONEX [Concomitant]
     Active Substance: MOMETASONE FUROATE
  42. OX BILE EXTRACT [Concomitant]
     Active Substance: BOS TAURUS BILE
  43. VITAMIN D3 [Concomitant]
     Active Substance: CHOLECALCIFEROL
  44. ADRENAL [Concomitant]
     Active Substance: EPINEPHRINE
  45. ARMOUR THYROID [Concomitant]
     Active Substance: THYROID, PORCINE
  46. THIAMINE. [Concomitant]
     Active Substance: THIAMINE
  47. ANUCORT-HC [Concomitant]
     Active Substance: HYDROCORTISONE ACETATE
  48. NAC [Concomitant]

REACTIONS (3)
  - Cough [Unknown]
  - Hypersensitivity [Unknown]
  - Sinus disorder [Unknown]
